FAERS Safety Report 8644234 (Version 4)
Quarter: 2013Q3

REPORT INFORMATION
  Report Type: Report from Study
  Country: JP (occurrence: JP)
  Receive Date: 20120629
  Receipt Date: 20130903
  Transmission Date: 20140515
  Serious: Yes (Hospitalization, Other)
  Sender: FDA-Public Use
  Company Number: JP-VERTEX PHARMACEUTICALS INC.-AE-2012-009243

PATIENT
  Age: 63 Year
  Sex: Male

DRUGS (17)
  1. VX-950 (TELAPREVIR) [Suspect]
     Indication: CHRONIC HEPATITIS C
     Dosage: 2250 MG, QD
     Route: 048
     Dates: start: 20120514, end: 20120520
  2. RIBAVIRIN [Suspect]
     Indication: CHRONIC HEPATITIS C
     Dosage: 800 MG, QD
     Route: 048
     Dates: start: 20120514
  3. PEGINTRON [Suspect]
     Indication: CHRONIC HEPATITIS C
     Dosage: 1.5 ?G/KG, QW
     Route: 058
     Dates: start: 20120514, end: 20120521
  4. PEGINTRON [Suspect]
     Dosage: 1.2 ?G/KG, QW
     Route: 058
     Dates: start: 20120528, end: 20121030
  5. ADALAT CR [Concomitant]
     Dosage: 20 MG, QD
     Route: 048
     Dates: end: 20120612
  6. NEUROTROPIN [Concomitant]
     Dosage: 16 DF, QD
     Route: 048
     Dates: end: 20120611
  7. HYPEN [Concomitant]
     Dosage: 400 MG, QD
     Route: 048
     Dates: end: 20120606
  8. EURODIN [Concomitant]
     Dosage: 2 MG, QD
     Route: 048
     Dates: end: 20120601
  9. LIDOMEX [Concomitant]
     Dosage: UNK, BID
     Route: 061
     Dates: end: 20120604
  10. ANTEBATE [Concomitant]
     Dosage: UNK UNK, BID
     Route: 061
     Dates: end: 20120604
  11. LOXONIN [Concomitant]
     Dosage: 60 MG QD, PRN
     Route: 048
     Dates: end: 20120625
  12. MUCOSTA [Concomitant]
     Dosage: 200 MG, QD
     Route: 048
     Dates: end: 20120722
  13. MUCOSTA [Concomitant]
     Dosage: 100 MG QD, PRN
     Route: 048
     Dates: end: 20120625
  14. LAXOBERON [Concomitant]
     Dosage: 15 GTT, QD
     Route: 050
     Dates: end: 20120902
  15. MAGLAX [Concomitant]
     Dosage: 750 MG, QD
     Route: 048
     Dates: start: 20120514
  16. MAGLAX [Concomitant]
     Dosage: 250 MG, QD
     Route: 048
     Dates: start: 20120606, end: 20120606
  17. ZYLORIC [Concomitant]
     Dosage: 100 MG, QD
     Route: 048
     Dates: start: 20120518, end: 20120529

REACTIONS (3)
  - Rash [Recovered/Resolved]
  - Neutrophil count decreased [Recovered/Resolved]
  - Erysipelas [Recovered/Resolved]
